FAERS Safety Report 4736228-0 (Version None)
Quarter: 2005Q3

REPORT INFORMATION
  Report Type: 
  Country: None (occurrence: None)
  Receive Date: 20050808
  Receipt Date: 20050713
  Transmission Date: 20060218
  Serious: Yes (Other)
  Sender: FDA-Public Use
  Company Number: PHEH2005US07793

PATIENT
  Age: 49 Year
  Sex: Female

DRUGS (4)
  1. GLEEVEC [Suspect]
     Indication: CHRONIC MYELOID LEUKAEMIA
     Dosage: 600 MG, UNK
     Route: 048
     Dates: start: 20040801
  2. GLEEVEC [Suspect]
     Dosage: 400 MG, BID
     Route: 048
     Dates: start: 20040726, end: 20040801
  3. ALLOPURINOL [Concomitant]
     Dosage: 300 MG, QD
  4. FERROUS SULFATE TAB [Concomitant]
     Indication: ANAEMIA
     Dosage: 325 MG, TID PRN
     Dates: start: 20040729

REACTIONS (10)
  - ANAEMIA [None]
  - BLADDER CANCER [None]
  - BLADDER MASS [None]
  - HAEMATURIA [None]
  - HAEMOGLOBIN DECREASED [None]
  - PROTEINURIA [None]
  - RASH [None]
  - RED BLOOD CELL COUNT DECREASED [None]
  - RED BLOOD CELLS URINE POSITIVE [None]
  - WHITE BLOOD CELLS URINE POSITIVE [None]
